FAERS Safety Report 9271416 (Version 1)
Quarter: 2013Q2

REPORT INFORMATION
  Report Type: Spontaneous
  Country: US (occurrence: US)
  Receive Date: 20130506
  Receipt Date: 20130506
  Transmission Date: 20140414
  Serious: Yes (Hospitalization)
  Sender: FDA-Public Use
  Company Number: US-PFIZER INC-2013138847

PATIENT
  Age: 36 Year
  Sex: Female
  Weight: 88.44 kg

DRUGS (2)
  1. GEODON [Suspect]
     Indication: BIPOLAR DISORDER
     Dosage: 40 MG, 3X/DAY
  2. GEODON [Suspect]
     Dosage: 40 MG, 3X/DAY
     Dates: start: 201212

REACTIONS (3)
  - Gastric disorder [Unknown]
  - Decreased appetite [Unknown]
  - Malnutrition [Unknown]
